FAERS Safety Report 11271034 (Version 3)
Quarter: 2015Q3

REPORT INFORMATION
  Report Type: Spontaneous
  Country: US (occurrence: US)
  Receive Date: 20150714
  Receipt Date: 20150821
  Transmission Date: 20151125
  Serious: Yes (Other)
  Sender: FDA-Public Use
  Company Number: US-GILEAD-2015-0163113

PATIENT
  Age: 63 Year
  Sex: Male
  Weight: 102.9 kg

DRUGS (1)
  1. HARVONI [Suspect]
     Active Substance: LEDIPASVIR\SOFOSBUVIR
     Indication: CHRONIC HEPATITIS C
     Dosage: UNK
     Route: 065
     Dates: start: 201501, end: 20150704

REACTIONS (4)
  - Diarrhoea haemorrhagic [Recovered/Resolved]
  - Abnormal dreams [Recovered/Resolved]
  - Skin exfoliation [Unknown]
  - Muscle spasms [Recovered/Resolved]
